FAERS Safety Report 9915167 (Version 1)
Quarter: 2014Q1

REPORT INFORMATION
  Report Type: Spontaneous
  Country: RU (occurrence: RU)
  Receive Date: 20140220
  Receipt Date: 20140220
  Transmission Date: 20141002
  Serious: Yes (Death)
  Sender: FDA-Public Use
  Company Number: RU-ASTRAZENECA-2014SE12103

PATIENT
  Sex: Male

DRUGS (2)
  1. BRILINTA [Suspect]
     Indication: ACUTE CORONARY SYNDROME
     Route: 048
     Dates: start: 2014, end: 2014
  2. ASPIRIN [Concomitant]
     Indication: ACUTE CORONARY SYNDROME

REACTIONS (2)
  - Thrombosis in device [Fatal]
  - Therapy cessation [Fatal]
